FAERS Safety Report 7085737-0 (Version None)
Quarter: 2010Q4

REPORT INFORMATION
  Report Type: 
  Country: None (occurrence: None)
  Receive Date: 20101105
  Receipt Date: 20101027
  Transmission Date: 20110411
  Serious: Yes (Life-Threatening)
  Sender: FDA-Public Use
  Company Number: GB-GENENTECH-308872

PATIENT
  Age: 74 Year
  Sex: Female
  Weight: 66.7 kg

DRUGS (4)
  1. RITUXIMAB [Suspect]
     Indication: NON-HODGKIN'S LYMPHOMA
     Dosage: 640 MG, UNK
     Route: 042
     Dates: start: 20101007, end: 20101007
  2. CO-CODAMOL [Concomitant]
     Indication: ARTHRALGIA
     Dosage: 500 MG, UNK
     Route: 048
     Dates: start: 20100801
  3. CYCLIZINE [Concomitant]
     Indication: ANTIEMETIC SUPPORTIVE CARE
     Dosage: 50 MG, UNK
     Route: 048
     Dates: start: 20100929
  4. LANSOPRAZOLE [Concomitant]
     Indication: PROPHYLAXIS
     Dosage: 30 MG, UNK
     Route: 048
     Dates: start: 20100929

REACTIONS (2)
  - ELECTROCARDIOGRAM ABNORMAL [None]
  - MYOCARDIAL ISCHAEMIA [None]
